FAERS Safety Report 16542438 (Version 1)
Quarter: 2019Q3

REPORT INFORMATION
  Report Type: Spontaneous
  Country: US (occurrence: US)
  Receive Date: 20190708
  Receipt Date: 20190708
  Transmission Date: 20191004
  Serious: No
  Sender: FDA-Public Use
  Company Number: US-C B FLEET CO INC-201805-US-001048

PATIENT
  Sex: Female

DRUGS (1)
  1. NIX COMPLETE MAXIMUM STRENGTH LICE ELIMINATION [Suspect]
     Active Substance: PERMETHRIN
     Indication: PRODUCT USED FOR UNKNOWN INDICATION
     Dosage: PRODUCT USE ONCE
     Route: 061
     Dates: start: 20180520

REACTIONS (1)
  - Epistaxis [Recovered/Resolved]
